FAERS Safety Report 5534922-5 (Version None)
Quarter: 2007Q4

REPORT INFORMATION
  Report Type: 
  Country: None (occurrence: None)
  Receive Date: 20071205
  Receipt Date: 20071204
  Transmission Date: 20080405
  Serious: No
  Sender: FDA-Public Use
  Company Number: US-BOEHRINGER INGELHEIM PHARMACEUTICALS, INC.-2007-BP-22261BP

PATIENT
  Age: 66 Year
  Sex: Male

DRUGS (10)
  1. SPIRIVA [Suspect]
     Indication: CHRONIC OBSTRUCTIVE PULMONARY DISEASE
     Route: 055
     Dates: start: 20061001
  2. ASPIRIN [Concomitant]
  3. BENTYL [Concomitant]
  4. ZESTORETIC [Concomitant]
  5. XANAX [Concomitant]
  6. COMBIVENT [Concomitant]
  7. SEREVENT [Concomitant]
  8. VICODIN [Concomitant]
  9. SINGULAIR [Concomitant]
  10. NEXIUM [Concomitant]

REACTIONS (1)
  - DYSURIA [None]
